FAERS Safety Report 12548077 (Version 1)
Quarter: 2016Q3

REPORT INFORMATION
  Report Type: Spontaneous
  Country: US (occurrence: US)
  Receive Date: 20160712
  Receipt Date: 20160712
  Transmission Date: 20161109
  Serious: No
  Sender: FDA-Public Use
  Company Number: US-BAYER-2016-135956

PATIENT
  Age: 83 Year
  Sex: Female
  Weight: 140.59 kg

DRUGS (4)
  1. ISOSORBIDE. [Concomitant]
     Active Substance: ISOSORBIDE
     Dosage: UNK
  2. NORVASC [Concomitant]
     Active Substance: AMLODIPINE BESYLATE
     Dosage: UNK
  3. MIRALAX [Suspect]
     Active Substance: POLYETHYLENE GLYCOL 3350
     Indication: CONSTIPATION
     Dosage: 1 DF, QD
     Route: 048
  4. CLONIDINE. [Concomitant]
     Active Substance: CLONIDINE
     Dosage: UNK

REACTIONS (1)
  - Diarrhoea [Recovered/Resolved]
